FAERS Safety Report 7560283-6 (Version None)
Quarter: 2011Q2

REPORT INFORMATION
  Report Type: 
  Country: None (occurrence: None)
  Receive Date: 20110621
  Receipt Date: 20110608
  Transmission Date: 20111010
  Serious: Yes (Hospitalization)
  Sender: FDA-Public Use
  Company Number: US-AMGEN-USASP2011029787

PATIENT
  Age: 65 Year
  Sex: Male

DRUGS (3)
  1. ETODOLAC [Concomitant]
     Dosage: 400 MG, Q12H
  2. DICLOFENAC SODIUM [Concomitant]
     Dosage: 75 MG, Q12H
  3. ENBREL [Suspect]
     Indication: RHEUMATOID ARTHRITIS
     Dosage: 50 MG, QWK
     Dates: start: 20020301

REACTIONS (7)
  - SINUSITIS [None]
  - ATRIAL FIBRILLATION [None]
  - MUSCULOSKELETAL STIFFNESS [None]
  - MYOCARDIAL INFARCTION [None]
  - CORONARY ARTERY BYPASS [None]
  - CHEST PAIN [None]
  - DYSPNOEA [None]
